APPROVED DRUG PRODUCT: TALICIA
Active Ingredient: AMOXICILLIN; OMEPRAZOLE MAGNESIUM; RIFABUTIN
Strength: 250MG;EQ 10MG BASE;12.5MG
Dosage Form/Route: CAPSULE, DELAYED RELEASE;ORAL
Application: N213004 | Product #001
Applicant: TALICIA HOLDINGS INC
Approved: Nov 1, 2019 | RLD: Yes | RS: Yes | Type: RX

PATENTS:
Patent 9603806 | Expires: Feb 12, 2034
Patent 9498445 | Expires: Feb 12, 2034
Patent 9050263 | Expires: Feb 12, 2034
Patent 11878011 | Expires: May 27, 2042
Patent 11135172 | Expires: Feb 12, 2034
Patent 11931463 | Expires: Feb 12, 2034
Patent 10238606 | Expires: Feb 12, 2034

EXCLUSIVITY:
Code: NP | Date: Nov 1, 2022
Code: GAIN | Date: Nov 1, 2027